FAERS Safety Report 6898527-6 (Version None)
Quarter: 2010Q3

REPORT INFORMATION
  Report Type: 
  Country: None (occurrence: None)
  Receive Date: 20100802
  Receipt Date: 20071030
  Transmission Date: 20110219
  Serious: No
  Sender: FDA-Public Use
  Company Number: US-PFIZER INC-2007076333

PATIENT
  Sex: Male
  Weight: 95.3 kg

DRUGS (7)
  1. LYRICA [Suspect]
     Indication: DIABETIC NEUROPATHY
     Route: 048
     Dates: start: 20040101
  2. AVANDIA [Concomitant]
     Indication: TYPE 2 DIABETES MELLITUS
     Route: 048
  3. LISINOPRIL [Concomitant]
     Route: 048
  4. ZOCOR [Concomitant]
     Route: 048
  5. LUMIGAN [Concomitant]
     Route: 031
  6. NAPROSYN [Concomitant]
     Route: 048
  7. BACLOFEN [Concomitant]
     Route: 048

REACTIONS (3)
  - DRY MOUTH [None]
  - NEUROPATHY PERIPHERAL [None]
  - WEIGHT DECREASED [None]
